FAERS Safety Report 8394529-1 (Version None)
Quarter: 2012Q2

REPORT INFORMATION
  Report Type: 
  Country: None (occurrence: None)
  Receive Date: 20120530
  Receipt Date: 20120525
  Transmission Date: 20120825
  Serious: Yes (Hospitalization)
  Sender: FDA-Public Use
  Company Number: PHHY2012PK044996

PATIENT
  Age: 69 Year
  Sex: Female

DRUGS (2)
  1. CALCIUM [Concomitant]
     Indication: OSTEOPOROSIS
     Route: 048
  2. ZOLEDRONOC ACID [Suspect]
     Indication: OSTEOPOROSIS
     Route: 042
     Dates: start: 20110607

REACTIONS (1)
  - PELVIC FRACTURE [None]
